FAERS Safety Report 7275828-3 (Version None)
Quarter: 2011Q1

REPORT INFORMATION
  Report Type: 
  Country: None (occurrence: None)
  Receive Date: 20110204
  Receipt Date: 20110125
  Transmission Date: 20110831
  Serious: Yes (Hospitalization, Other)
  Sender: FDA-Public Use
  Company Number: DE-ABBOTT-09P-062-0567037-00

PATIENT
  Sex: Female

DRUGS (5)
  1. DEXIBUPROFEN [Concomitant]
     Indication: PAIN
  2. HUMIRA [Suspect]
     Indication: ANKYLOSING SPONDYLITIS
     Route: 058
     Dates: start: 20080911, end: 20090222
  3. HUMIRA [Suspect]
     Dates: end: 20101106
  4. CORTISONE [Concomitant]
     Indication: ANKYLOSING SPONDYLITIS
  5. IBUPROFEN [Concomitant]
     Indication: PAIN
     Dosage: FORM: 800
     Dates: start: 20080911

REACTIONS (2)
  - INTERVERTEBRAL DISC PROTRUSION [None]
  - POST PROCEDURAL COMPLICATION [None]
